FAERS Safety Report 10439814 (Version 1)
Quarter: 2014Q3

REPORT INFORMATION
  Report Type: Report from Study
  Country: US (occurrence: US)
  Receive Date: 20140908
  Receipt Date: 20140908
  Transmission Date: 20150326
  Serious: Yes (Other)
  Sender: FDA-Public Use
  Company Number: US-US-EMD SERONO, INC.-7318777

PATIENT
  Age: 13 Year
  Sex: Male
  Weight: 33 kg

DRUGS (5)
  1. HYDROCODONE [Concomitant]
     Active Substance: HYDROCODONE
     Indication: PRODUCT USED FOR UNKNOWN INDICATION
     Route: 048
  2. SAIZEN [Suspect]
     Active Substance: SOMATROPIN
     Indication: GROWTH HORMONE DEFICIENCY
     Route: 058
     Dates: start: 201307
  3. TEV-TROPIN [Concomitant]
     Active Substance: SOMATROPIN
     Indication: GROWTH HORMONE DEFICIENCY
     Dates: start: 201306
  4. TEV-TROPIN [Concomitant]
     Active Substance: SOMATROPIN
     Indication: BODY HEIGHT BELOW NORMAL
  5. SAIZEN [Suspect]
     Active Substance: SOMATROPIN
     Indication: BODY HEIGHT BELOW NORMAL
     Route: 058
     Dates: start: 201408

REACTIONS (6)
  - Otitis media [Unknown]
  - Clostridium difficile colitis [Unknown]
  - Heart rate increased [Unknown]
  - Blood pressure diastolic increased [Unknown]
  - Glycosylated haemoglobin increased [Unknown]
  - Herpes zoster [Unknown]

NARRATIVE: CASE EVENT DATE: 20130912
